FAERS Safety Report 17025956 (Version 1)
Quarter: 2019Q4

REPORT INFORMATION
  Report Type: Spontaneous
  Country: US (occurrence: US)
  Receive Date: 20191009
  Receipt Date: 20191009
  Transmission Date: 20200122
  Serious: No
  Sender: FDA-Public Use
  Company Number: None

PATIENT
  Age: 34 Year
  Sex: Female

DRUGS (1)
  1. HUMIRA [Suspect]
     Active Substance: ADALIMUMAB
     Indication: COLITIS ULCERATIVE
     Dosage: ?          OTHER FREQUENCY:1 PEN EVERY 14 DAY;?
     Route: 058
     Dates: start: 20190619, end: 20190911

REACTIONS (3)
  - Hypoaesthesia [None]
  - Mood altered [None]
  - Headache [None]

NARRATIVE: CASE EVENT DATE: 20190801
